FAERS Safety Report 12240908 (Version 1)
Quarter: 2016Q2

REPORT INFORMATION
  Report Type: Spontaneous
  Country: US (occurrence: None)
  Receive Date: 20160405
  Receipt Date: 20160405
  Transmission Date: 20160815
  Serious: Yes (Death)
  Sender: FDA-Public Use
  Company Number: None

PATIENT
  Age: 83 Year
  Sex: Female
  Weight: 43.23 kg

DRUGS (2)
  1. SUNITINIB [Concomitant]
     Active Substance: SUNITINIB
  2. SUTENT [Suspect]
     Active Substance: SUNITINIB MALATE
     Indication: RENAL CELL CARCINOMA
     Dosage: 37.5 MG 2 WKS ON, 1 WK OFF ORAL
     Route: 048
     Dates: start: 20151201, end: 20160304

REACTIONS (4)
  - Condition aggravated [None]
  - Gastrointestinal haemorrhage [None]
  - Haemoglobin decreased [None]
  - Haemorrhoids [None]

NARRATIVE: CASE EVENT DATE: 20160304
